FAERS Safety Report 6200457-X (Version None)
Quarter: 2009Q2

REPORT INFORMATION
  Report Type: 
  Country: None (occurrence: None)
  Receive Date: 20090522
  Receipt Date: 20080318
  Transmission Date: 20091009
  Serious: No
  Sender: FDA-Public Use
  Company Number: US-ALEXION-A200800058

PATIENT
  Sex: Male

DRUGS (7)
  1. SOLIRIS [Suspect]
     Indication: PAROXYSMAL NOCTURNAL HAEMOGLOBINURIA
     Dosage: 600 MG, SINGLE
     Route: 042
     Dates: start: 20080317, end: 20080317
  2. ANDROGEL [Concomitant]
     Indication: ERECTILE DYSFUNCTION
     Dosage: UNK, QD
     Route: 061
  3. COUMADIN [Concomitant]
     Dosage: 2.5 MG, QD
     Route: 048
  4. MULTIVITAMIN /00831701/ [Concomitant]
     Dosage: UNK, QD
     Route: 048
  5. IRON [Concomitant]
     Dosage: UNK, QD
     Route: 048
  6. FOLIC ACID [Concomitant]
     Indication: PAROXYSMAL NOCTURNAL HAEMOGLOBINURIA
     Dosage: UNK, QD
     Route: 048
  7. PROCRIT /00909301/ [Concomitant]
     Dosage: 60000 IU, 3XWEEKLY

REACTIONS (2)
  - HEADACHE [None]
  - PAIN IN EXTREMITY [None]
